FAERS Safety Report 12236374 (Version 2)
Quarter: 2016Q2

REPORT INFORMATION
  Report Type: Spontaneous
  Country: US (occurrence: US)
  Receive Date: 20160404
  Receipt Date: 20160421
  Transmission Date: 20160815
  Serious: No
  Sender: FDA-Public Use
  Company Number: US-TAKEDA-2016TUS005378

PATIENT
  Age: 48 Year
  Sex: Male
  Weight: 93.88 kg

DRUGS (5)
  1. TRINTELLIX [Suspect]
     Active Substance: VORTIOXETINE HYDROBROMIDE
     Indication: ANXIETY
  2. CLONAZEPAM. [Concomitant]
     Active Substance: CLONAZEPAM
     Indication: ANXIETY
     Dosage: 1 MG, BID
     Route: 048
     Dates: start: 20160307, end: 20160403
  3. TRINTELLIX [Suspect]
     Active Substance: VORTIOXETINE HYDROBROMIDE
     Indication: DEPRESSION
     Dosage: 10 MG, QD
     Route: 048
     Dates: start: 20160307, end: 20160310
  4. LEVOTHYROXINE. [Concomitant]
     Active Substance: LEVOTHYROXINE
     Indication: HYPOTHYROIDISM
     Dosage: 125 ?G, QD
     Route: 048
  5. ZOCOR [Concomitant]
     Active Substance: SIMVASTATIN
     Indication: HYPERLIPIDAEMIA
     Dosage: 20 MG, QD
     Route: 048

REACTIONS (3)
  - Vomiting projectile [Recovered/Resolved]
  - Retching [Recovered/Resolved]
  - Nausea [Recovered/Resolved]

NARRATIVE: CASE EVENT DATE: 20160310
